FAERS Safety Report 16910144 (Version 2)
Quarter: 2019Q4

REPORT INFORMATION
  Report Type: Spontaneous
  Country: US (occurrence: US)
  Receive Date: 20191011
  Receipt Date: 20191101
  Transmission Date: 20200122
  Serious: Yes (Other)
  Sender: FDA-Public Use
  Company Number: US-ALLERGAN-1940820US

PATIENT
  Sex: Female

DRUGS (2)
  1. REFRESH PLUS [Suspect]
     Active Substance: CARBOXYMETHYLCELLULOSE SODIUM
     Indication: DRY EYE
     Dosage: UNK
     Route: 047
     Dates: start: 2015, end: 201910
  2. TIMOLOL PRESERVATIVE FREE [Concomitant]
     Indication: GLAUCOMA
     Route: 047

REACTIONS (4)
  - Eye swelling [Unknown]
  - Eye pain [Recovering/Resolving]
  - Glaucoma [Unknown]
  - Calcinosis [Unknown]

NARRATIVE: CASE EVENT DATE: 201908
